FAERS Safety Report 8678801 (Version 3)
Quarter: 2012Q4

REPORT INFORMATION
  Report Type: 
  Country: US (occurrence: US)
  Receive Date: 20120723
  Receipt Date: 20120926
  Transmission Date: 20130627
  Serious: Yes (Other)
  Sender: FDA-Public Use
  Company Number: US-GLAXOSMITHKLINE-A0984799A

PATIENT
  Age: 36 Year
  Sex: Female

DRUGS (2)
  1. ADVAIR [Suspect]
     Indication: ASTHMA
     Dosage: 1PUFF Twice per day
     Route: 055
  2. PRO-AIR [Concomitant]

REACTIONS (3)
  - Asthma [Unknown]
  - Drug administration error [Unknown]
  - Product quality issue [Unknown]
